FAERS Safety Report 6686522-1 (Version None)
Quarter: 2010Q2

REPORT INFORMATION
  Report Type: 
  Country: None (occurrence: None)
  Receive Date: 20100419
  Receipt Date: 20100406
  Transmission Date: 20101027
  Serious: Yes (Other)
  Sender: FDA-Public Use
  Company Number: US-ROCHE-696814

PATIENT
  Sex: Female
  Weight: 108.9 kg

DRUGS (21)
  1. KLONOPIN [Suspect]
     Indication: ANXIETY
     Dosage: OTHER INDICATION: PANIC ATTACKS
     Route: 048
  2. METFORMIN HCL [Suspect]
     Route: 048
  3. ZYRTEC [Suspect]
     Route: 048
     Dates: start: 20090101
  4. GABAPENTIN [Suspect]
     Indication: DIABETIC NEUROPATHY
     Dosage: OTHER INDICATION: FIBROMYALGIA
     Route: 048
     Dates: start: 20040101
  5. VICODIN [Suspect]
     Route: 048
     Dates: start: 20060101
  6. ZANAFLEX [Suspect]
     Route: 048
     Dates: start: 20090101
  7. VALSARTAN [Suspect]
     Route: 048
     Dates: start: 20020101
  8. BUPROPION [Suspect]
     Indication: DEPRESSION
     Route: 048
  9. LOZOL [Suspect]
     Dosage: FORM: PILL
     Route: 048
     Dates: start: 20020101
  10. JANUMET [Suspect]
     Route: 048
  11. PRILOSEC [Suspect]
     Route: 048
  12. CARAFATE [Suspect]
     Route: 048
  13. AGGRENOX [Suspect]
     Indication: ARTERIAL DISORDER
     Route: 048
     Dates: start: 20091201
  14. FLONASE [Suspect]
     Dosage: FORM: SPRAY, 50 MICROGRAMS TWO SPRAYS PER NOSTRIL
     Route: 045
  15. FLOVENT [Suspect]
     Indication: ASTHMA
     Dosage: FORM: PUFF, 110 MICROGRAMS TWO PUFFS TWICE DAILY
     Route: 065
  16. VENTOLIN [Suspect]
     Indication: ASTHMA
     Dosage: FORM: PUFF, 90 MICROGRAMS TWO PUFFS EVERY TWO HOURS
     Route: 065
  17. IMITREX [Suspect]
     Indication: MIGRAINE
     Route: 048
  18. NITROLINGUAL [Suspect]
     Indication: CHEST PAIN
     Dosage: FORM: SPRAY
     Route: 065
  19. EPIPEN [Suspect]
     Route: 062
  20. LORTAB [Suspect]
     Indication: DRUG USE FOR UNKNOWN INDICATION
     Route: 048
  21. SIMVASTATIN [Suspect]
     Indication: DRUG USE FOR UNKNOWN INDICATION
     Route: 048

REACTIONS (2)
  - MEMORY IMPAIRMENT [None]
  - MYOCARDIAL INFARCTION [None]
